FAERS Safety Report 10565980 (Version 3)
Quarter: 2016Q3

REPORT INFORMATION
  Report Type: Spontaneous
  Country: US (occurrence: US)
  Receive Date: 20141105
  Receipt Date: 20160808
  Transmission Date: 20161109
  Serious: No
  Sender: FDA-Public Use
  Company Number: US-PFIZER INC-2014304054

PATIENT
  Age: 48 Year
  Sex: Female
  Weight: 58.96 kg

DRUGS (20)
  1. LYRICA [Suspect]
     Active Substance: PREGABALIN
     Indication: PAIN
     Dosage: 100 MG, 3X/DAY
     Route: 048
  2. ZOLOFT [Concomitant]
     Active Substance: SERTRALINE HYDROCHLORIDE
     Indication: DEPRESSION
     Dosage: 100 MG, UNK
  3. LORAZEPAM. [Concomitant]
     Active Substance: LORAZEPAM
     Indication: CANCER PAIN
     Dosage: 0.5 MG, UNK
  4. OMEPRAZOLE. [Concomitant]
     Active Substance: OMEPRAZOLE
     Indication: GASTROOESOPHAGEAL REFLUX DISEASE
     Dosage: 40 MG, UNK
  5. MUPIROCIN. [Concomitant]
     Active Substance: MUPIROCIN
     Indication: NASAL DRYNESS
     Dosage: UNK
  6. CARAFATE [Concomitant]
     Active Substance: SUCRALFATE
     Indication: GASTROOESOPHAGEAL REFLUX DISEASE
     Dosage: UNK
  7. AMITRIPTYLINE [Concomitant]
     Active Substance: AMITRIPTYLINE
     Indication: BREAST PAIN
     Dosage: 100 MG, UNK
  8. OXYCODONE [Concomitant]
     Active Substance: OXYCODONE
     Indication: CANCER PAIN
     Dosage: 5 MG, UNK
  9. PROPRANOLOL ER [Concomitant]
     Indication: MIGRAINE
     Dosage: 120 MG, UNK
  10. TOPAMAX [Concomitant]
     Active Substance: TOPIRAMATE
     Indication: MIGRAINE
     Dosage: 50 MG, UNK
  11. SUMATRIPTAN. [Concomitant]
     Active Substance: SUMATRIPTAN
     Indication: MIGRAINE
     Dosage: 100 MG, AS NEEDED
  12. BACLOFEN. [Concomitant]
     Active Substance: BACLOFEN
     Indication: GASTROOESOPHAGEAL REFLUX DISEASE
     Dosage: 10 MG, 1X/DAY(AT NIGHT)
  13. BACLOFEN. [Concomitant]
     Active Substance: BACLOFEN
     Indication: CHEST PAIN
  14. MONTELUKAST SODIUM. [Concomitant]
     Active Substance: MONTELUKAST SODIUM
     Indication: ASTHMA
     Dosage: 10 MG, UNK
  15. MIDODRINE [Concomitant]
     Active Substance: MIDODRINE
     Indication: HYPOTENSION
     Dosage: 5 MG, UNK
  16. ELAVIL [Concomitant]
     Active Substance: AMITRIPTYLINE HYDROCHLORIDE
     Indication: CANCER PAIN
     Dosage: 50 MG, UNK
  17. MISOPROSTOL. [Concomitant]
     Active Substance: MISOPROSTOL
     Indication: GASTROOESOPHAGEAL REFLUX DISEASE
     Dosage: 100 UG, UNK
  18. LYRICA [Suspect]
     Active Substance: PREGABALIN
     Indication: CANCER PAIN
  19. BACLOFEN. [Concomitant]
     Active Substance: BACLOFEN
     Indication: DYSPEPSIA
     Dosage: 0.5 MG, UNK
  20. BACLOFEN. [Concomitant]
     Active Substance: BACLOFEN
     Indication: BREAST PAIN

REACTIONS (2)
  - Dry mouth [Unknown]
  - Product use issue [Unknown]
